FAERS Safety Report 5883271-4 (Version None)
Quarter: 2008Q3

REPORT INFORMATION
  Report Type: 
  Country: None (occurrence: None)
  Receive Date: 20080915
  Receipt Date: 20080904
  Transmission Date: 20090109
  Serious: Yes (Other)
  Sender: FDA-Public Use
  Company Number: US-BAYER-200813592BCC

PATIENT
  Age: 37 Year
  Sex: Male
  Weight: 77 kg

DRUGS (2)
  1. ALEVE (CAPLET) [Suspect]
     Indication: PAIN IN EXTREMITY
     Dosage: UNIT DOSE: 220 MG
     Route: 048
     Dates: start: 20080903
  2. BENZTROPINE MESYLATE [Concomitant]

REACTIONS (4)
  - ABDOMINAL PAIN UPPER [None]
  - CONSTIPATION [None]
  - DIARRHOEA [None]
  - HAEMATOCHEZIA [None]
